FAERS Safety Report 17942359 (Version 1)
Quarter: 2020Q2

REPORT INFORMATION
  Report Type: Spontaneous
  Country: DE (occurrence: DE)
  Receive Date: 20200625
  Receipt Date: 20200625
  Transmission Date: 20200714
  Serious: Yes (Hospitalization)
  Sender: FDA-Public Use
  Company Number: DE-TEVA-2020-DE-1790589

PATIENT
  Age: 68 Year
  Sex: Male

DRUGS (6)
  1. PREDNISOLON [Suspect]
     Active Substance: PREDNISOLONE
     Dosage: 20 MILLIGRAM DAILY; 1-0-0-0,
     Route: 048
  2. FORMOTEROL EASYHALER 12MIKROGRAMM/DOSIS [Concomitant]
     Dosage: 24 MICROGRAM DAILY; 1-0-1-0,   MDI, FORM OF ADMIN. TEXT : EASYHALER
     Route: 055
  3. PANTOPRAZOL [Concomitant]
     Active Substance: PANTOPRAZOLE SODIUM
     Dosage: 40 MILLIGRAM DAILY;  1-0-0-0,
     Route: 048
  4. OLMESARTAN-ABZ 40MG [Concomitant]
     Dosage: 40 MILLIGRAM DAILY; 1-0-0-0,
     Route: 048
  5. MOMETASON-RATIOPHARM HEUSCHNUPFENSPRAY [Concomitant]
     Dosage: 50 MICROGRAM DAILY; FORM OF ADMIN. TEXT : SPRAY ?1-0-0-0, MDI
     Route: 055
  6. SALBUTAMOL AL FERTIGINHALAT [Concomitant]
     Dosage: FORM OF ADMIN. TEXT : INHALATE?NK MG, IF NECESSARY, MDI
     Route: 055

REACTIONS (3)
  - General physical health deterioration [Unknown]
  - Cardiac failure [Unknown]
  - Dyspnoea [Unknown]
